FAERS Safety Report 9649899 (Version 1)
Quarter: 2013Q4

REPORT INFORMATION
  Report Type: Spontaneous
  Country: US (occurrence: US)
  Receive Date: 20131028
  Receipt Date: 20131028
  Transmission Date: 20140711
  Serious: No
  Sender: FDA-Public Use
  Company Number: US-PURDUE-USA-2013-0105978

PATIENT
  Age: 34 Year
  Sex: Male

DRUGS (2)
  1. OXYCONTIN (NDA 22-272) [Suspect]
     Indication: PAIN
     Dosage: 40 MG, UNK
     Route: 048
  2. OXYCONTIN (NDA 22-272) [Suspect]
     Indication: AUTOIMMUNE DISORDER

REACTIONS (11)
  - Pain [Unknown]
  - Drug effect decreased [Unknown]
  - Tremor [Unknown]
  - Hyperhidrosis [Unknown]
  - Anxiety [Unknown]
  - Dyspepsia [Unknown]
  - Flatulence [Unknown]
  - Decreased appetite [Unknown]
  - Diarrhoea [Unknown]
  - Abdominal pain [Unknown]
  - Abdominal discomfort [Unknown]
